FAERS Safety Report 6733470-4 (Version None)
Quarter: 2010Q2

REPORT INFORMATION
  Report Type: 
  Country: None (occurrence: None)
  Receive Date: 20100520
  Receipt Date: 20100511
  Transmission Date: 20101027
  Serious: Yes (Disabling)
  Sender: FDA-Public Use
  Company Number: GB-ABBOTT-10P-167-0644134-00

PATIENT
  Age: 43 Year
  Sex: Female

DRUGS (4)
  1. HUMIRA [Suspect]
     Indication: SERONEGATIVE ARTHRITIS
     Route: 058
     Dates: start: 20091016, end: 20091111
  2. PREDNISOLONE [Concomitant]
     Indication: COLITIS
     Route: 048
  3. METHOTREXATE [Concomitant]
     Indication: COLITIS
     Route: 058
  4. SULPHASALAZINE [Concomitant]
     Indication: COLITIS
     Route: 048

REACTIONS (2)
  - BLINDNESS [None]
  - CHORIORETINOPATHY [None]
